FAERS Safety Report 10199553 (Version 1)
Quarter: 2014Q2

REPORT INFORMATION
  Report Type: Spontaneous
  Country: IT (occurrence: IT)
  Receive Date: 20140527
  Receipt Date: 20140527
  Transmission Date: 20141212
  Serious: Yes (Disabling)
  Sender: FDA-Public Use
  Company Number: IT-WATSON-2013-25164

PATIENT
  Age: 77 Year
  Sex: Female

DRUGS (3)
  1. RAMIPRIL ACTAVIS [Suspect]
     Indication: PRODUCT USED FOR UNKNOWN INDICATION
     Route: 065
     Dates: end: 20130624
  2. TICAGRELOR [Suspect]
     Indication: PRODUCT USED FOR UNKNOWN INDICATION
     Route: 048
     Dates: start: 20130426, end: 20130624
  3. CARDIRENE (SANOFI AVENTIS SPA) [Suspect]
     Indication: PRODUCT USED FOR UNKNOWN INDICATION
     Route: 065

REACTIONS (4)
  - Renal failure acute [Unknown]
  - Renal failure acute [None]
  - Dialysis [None]
  - Drug interaction [None]
